FAERS Safety Report 8158900-5 (Version None)
Quarter: 2012Q1

REPORT INFORMATION
  Report Type: 
  Country: None (occurrence: None)
  Receive Date: 20120223
  Receipt Date: 20120216
  Transmission Date: 20120608
  Serious: Yes (Death)
  Sender: FDA-Public Use
  Company Number: JP-BRISTOL-MYERS SQUIBB COMPANY-15918378

PATIENT
  Age: 70 Year
  Sex: Male

DRUGS (6)
  1. PREDNISONE [Concomitant]
  2. ACTONEL [Concomitant]
     Indication: OSTEOPOROSIS
  3. ORENCIA [Suspect]
     Indication: RHEUMATOID ARTHRITIS
     Dosage: NO OF DOSE: 5. 1DF= 500MG/BODY. DATE OF ADMIN: 26MAR11,9APR11,7MAY11.
     Route: 041
     Dates: start: 20110312, end: 20110604
  4. ISONIAZID [Concomitant]
     Indication: ANTIBIOTIC PROPHYLAXIS
  5. CELECOXIB [Concomitant]
     Indication: RHEUMATOID ARTHRITIS
  6. LYRICA [Concomitant]
     Indication: SPINAL OSTEOARTHRITIS

REACTIONS (1)
  - PNEUMONIA [None]
